FAERS Safety Report 4298888-0 (Version None)
Quarter: 2004Q1

REPORT INFORMATION
  Report Type: 
  Country: None (occurrence: None)
  Receive Date: 20040126
  Receipt Date: 20031110
  Transmission Date: 20041129
  Serious: No
  Sender: FDA-Public Use
  Company Number: USA031152127

PATIENT
  Age: 6 Year
  Sex: Female
  Weight: 23 kg

DRUGS (2)
  1. STRATTERA [Suspect]
     Dosage: 25 MG/DAY
  2. MULTI-VITAMINS [Concomitant]

REACTIONS (5)
  - DECREASED APPETITE [None]
  - DYSURIA [None]
  - HEART RATE INCREASED [None]
  - PALPITATIONS [None]
  - WEIGHT DECREASED [None]
